FAERS Safety Report 9714098 (Version 1)
Quarter: 2013Q4

REPORT INFORMATION
  Report Type: Spontaneous
  Country: US (occurrence: US)
  Receive Date: 20131126
  Receipt Date: 20131126
  Transmission Date: 20140711
  Serious: No
  Sender: FDA-Public Use
  Company Number: US-GILEAD-2008-0018844

PATIENT
  Sex: Female
  Weight: 59.87 kg

DRUGS (9)
  1. LETAIRIS [Suspect]
     Indication: PULMONARY ARTERIAL HYPERTENSION
     Route: 048
     Dates: start: 20081020
  2. FOLIC ACID [Concomitant]
  3. LORAZEPAM [Concomitant]
  4. METHOTREXATE [Concomitant]
  5. PRILOSEC [Concomitant]
  6. ZYRTEC [Concomitant]
  7. RHINCORT NASAL [Concomitant]
  8. BABY ASA [Concomitant]
  9. CENESTIN [Concomitant]

REACTIONS (2)
  - Flushing [None]
  - Limb discomfort [None]
